FAERS Safety Report 18229038 (Version 1)
Quarter: 2020Q3

REPORT INFORMATION
  Report Type: Spontaneous
  Country: CL (occurrence: CL)
  Receive Date: 20200903
  Receipt Date: 20200903
  Transmission Date: 20201103
  Serious: Yes (Death)
  Sender: FDA-Public Use
  Company Number: CL-SYNEX-T202004384

PATIENT

DRUGS (2)
  1. SURFACTANT BL [Suspect]
     Active Substance: CALFACTANT
     Indication: RESPIRATORY FAILURE
     Dosage: UNK (UP TO TWO DOSES)
     Route: 065
  2. INOMAX [Suspect]
     Active Substance: NITRIC OXIDE
     Indication: RESPIRATORY FAILURE
     Dosage: UNK (INHALATION)
     Route: 055

REACTIONS (1)
  - Respiratory failure [Fatal]
